FAERS Safety Report 8982667 (Version 6)
Quarter: 2013Q3

REPORT INFORMATION
  Report Type: Spontaneous
  Country: FR (occurrence: FR)
  Receive Date: 20121224
  Receipt Date: 20130823
  Transmission Date: 20140515
  Serious: Yes (Other)
  Sender: FDA-Public Use
  Company Number: FR-GILEAD-2012-0066741

PATIENT
  Age: 79 Year
  Sex: Male

DRUGS (4)
  1. TRUVADA [Suspect]
     Indication: HIV INFECTION
     Dosage: UNK
  2. RITONAVIR [Suspect]
     Indication: HIV INFECTION
     Dosage: UNK
  3. DARUNAVIR [Suspect]
     Indication: HIV INFECTION
     Dosage: 1200 DF, QD
  4. EFAVIRENZ [Suspect]
     Indication: HIV INFECTION

REACTIONS (2)
  - Drug reaction with eosinophilia and systemic symptoms [Recovered/Resolved]
  - Rash [Unknown]
